FAERS Safety Report 8625813-1 (Version None)
Quarter: 2012Q3

REPORT INFORMATION
  Report Type: 
  Country: None (occurrence: None)
  Receive Date: 20120827
  Receipt Date: 20120821
  Transmission Date: 20120928
  Serious: Yes (Hospitalization)
  Sender: FDA-Public Use
  Company Number: US-TEVA-355407USA

PATIENT
  Sex: Male
  Weight: 99.88 kg

DRUGS (11)
  1. PACLITAXEL [Suspect]
     Indication: SALIVARY GLAND CANCER
  2. OXYCODONE HCL [Concomitant]
     Indication: PAIN
     Dosage: 10/325 MG
     Route: 048
     Dates: start: 20090101
  3. CARBOPLATIN [Suspect]
     Indication: SALIVARY GLAND CANCER
  4. OGX-011 [Suspect]
     Route: 042
     Dates: start: 20120808, end: 20120808
  5. OGX-011 [Suspect]
     Route: 042
     Dates: start: 20120810, end: 20120810
  6. DURAGESIC-12 [Concomitant]
     Indication: PAIN
     Dosage: Q 72 HOURS
     Route: 062
     Dates: start: 20120501
  7. ATENOLOL [Concomitant]
     Indication: HYPERTENSION
     Dosage: 25 MILLIGRAM DAILY;
     Route: 048
     Dates: start: 20060101
  8. TAMSULOSIN HCL [Concomitant]
     Indication: BENIGN PROSTATIC HYPERPLASIA
     Route: 048
     Dates: start: 20060101
  9. GABAPENTIN [Concomitant]
     Indication: NEUROPATHY PERIPHERAL
     Dosage: 900 MILLIGRAM DAILY;
     Route: 048
     Dates: start: 20120101
  10. OGX-011 [Suspect]
     Indication: SALIVARY GLAND CANCER
     Route: 042
     Dates: start: 20120806, end: 20120806
  11. FINASTERIDE [Concomitant]
     Indication: BENIGN PROSTATIC HYPERPLASIA
     Route: 048
     Dates: start: 20060101

REACTIONS (1)
  - FAILURE TO THRIVE [None]
